FAERS Safety Report 22835782 (Version 2)
Quarter: 2025Q3

REPORT INFORMATION
  Report Type: Report from Study
  Country: EU (occurrence: EU)
  Receive Date: 20230818
  Receipt Date: 20250730
  Transmission Date: 20251021
  Serious: Yes (Other)
  Sender: AUROBINDO
  Company Number: EU-CHIESI-2023CHF03931

PATIENT
  Age: 52 Year
  Sex: Male

DRUGS (4)
  1. TENOFOVIR DISOPROXIL [Suspect]
     Active Substance: TENOFOVIR DISOPROXIL
     Indication: HIV infection
     Route: 065
  2. EMTRICITABINE [Suspect]
     Active Substance: EMTRICITABINE
     Indication: HIV infection
     Route: 065
  3. COBICISTAT\DARUNAVIR ETHANOLATE [Suspect]
     Active Substance: COBICISTAT\DARUNAVIR ETHANOLATE
     Indication: HIV infection
     Route: 065
  4. BUDESONIDE [Suspect]
     Active Substance: BUDESONIDE
     Indication: Chronic obstructive pulmonary disease
     Route: 055

REACTIONS (1)
  - Cushing^s syndrome [Recovered/Resolved]
